FAERS Safety Report 4835194-7 (Version None)
Quarter: 2005Q4

REPORT INFORMATION
  Report Type: 
  Country: None (occurrence: None)
  Receive Date: 20051122
  Receipt Date: 20051004
  Transmission Date: 20060501
  Serious: Yes (Hospitalization)
  Sender: FDA-Public Use
  Company Number: US-MERCK-0510USA02251

PATIENT
  Age: 47 Year
  Sex: Male
  Weight: 95 kg

DRUGS (1)
  1. VIOXX [Suspect]
     Route: 048

REACTIONS (9)
  - ARTHRALGIA [None]
  - ASTHENIA [None]
  - BURNING SENSATION [None]
  - CEREBROVASCULAR ACCIDENT [None]
  - FALL [None]
  - HYPERTENSION [None]
  - HYPOAESTHESIA [None]
  - MUSCLE SPASMS [None]
  - TRANSIENT ISCHAEMIC ATTACK [None]
